FAERS Safety Report 6202700-X (Version None)
Quarter: 2009Q2

REPORT INFORMATION
  Report Type: 
  Country: None (occurrence: None)
  Receive Date: 20090526
  Receipt Date: 20090515
  Transmission Date: 20091009
  Serious: Yes (Hospitalization, Other)
  Sender: FDA-Public Use
  Company Number: PHHY2009JP13606

PATIENT
  Sex: Female
  Weight: 73 kg

DRUGS (18)
  1. GLEEVEC [Suspect]
     Indication: CHRONIC MYELOID LEUKAEMIA
     Dosage: 400 MG/DAY
     Route: 048
     Dates: start: 20080213, end: 20080213
  2. GLEEVEC [Suspect]
     Dosage: 200 MG/DAY
     Route: 048
     Dates: start: 20080214, end: 20080314
  3. GLEEVEC [Suspect]
     Dosage: 300 MG
     Route: 048
     Dates: start: 20080414, end: 20090316
  4. GLEEVEC [Suspect]
     Dosage: 200 MG/DAY
     Dates: start: 20080604
  5. GLEEVEC [Suspect]
     Dosage: 300 MG/DAY
  6. GLEEVEC [Suspect]
     Dosage: 4 TABLETS
     Route: 048
     Dates: start: 20090213, end: 20090213
  7. GLEEVEC [Suspect]
     Dosage: 2 TABLETS
     Route: 048
     Dates: start: 20090214, end: 20090316
  8. GEFITINIB [Suspect]
     Indication: CHRONIC MYELOID LEUKAEMIA
     Dosage: 250 MG/DAY
     Route: 048
     Dates: start: 20080429, end: 20081223
  9. ADALAT CC [Concomitant]
     Indication: HYPERTENSION
     Dosage: 40 MG, UNK
     Route: 048
     Dates: start: 20080205, end: 20080312
  10. TAKEPRON [Concomitant]
     Indication: OESOPHAGITIS
     Dosage: 15 MG, UNK
     Route: 048
     Dates: start: 20080218
  11. DOXORUBICIN HYDROCHLORIDE [Concomitant]
     Dosage: 30 MG
     Route: 042
     Dates: start: 20080317, end: 20080317
  12. DOXORUBICIN HYDROCHLORIDE [Concomitant]
     Dosage: 30 MG
     Route: 042
     Dates: start: 20080324, end: 20080324
  13. CISPLATIN [Concomitant]
     Dosage: 250 MG, UNK
     Route: 048
     Dates: start: 20080429
  14. CISPLATIN [Concomitant]
     Dosage: 25 MG
     Dates: start: 20080331, end: 20080331
  15. ADRIAMYCIN RDF [Concomitant]
     Dosage: 30 MG, UNK
     Dates: start: 20080317
  16. ADRIAMYCIN RDF [Concomitant]
     Dosage: 30 MG, UNK
     Dates: start: 20080324
  17. CARBOPLATIN [Concomitant]
  18. GEMCITABINE HCL [Concomitant]

REACTIONS (17)
  - ALANINE AMINOTRANSFERASE INCREASED [None]
  - ARTHRALGIA [None]
  - ASPARTATE AMINOTRANSFERASE INCREASED [None]
  - BLOOD ALKALINE PHOSPHATASE INCREASED [None]
  - BLOOD LACTATE DEHYDROGENASE INCREASED [None]
  - BLOOD POTASSIUM DECREASED [None]
  - BLOOD SODIUM DECREASED [None]
  - DRUG INTOLERANCE [None]
  - DYSPNOEA [None]
  - GAMMA-GLUTAMYLTRANSFERASE INCREASED [None]
  - MALIGNANT NEOPLASM PROGRESSION [None]
  - NAUSEA [None]
  - PERFORMANCE STATUS DECREASED [None]
  - PLEURAL EFFUSION [None]
  - PLEURODESIS [None]
  - STAPHYLOCOCCAL INFECTION [None]
  - VOMITING [None]
